FAERS Safety Report 8590807-1 (Version None)
Quarter: 2012Q3

REPORT INFORMATION
  Report Type: 
  Country: None (occurrence: None)
  Receive Date: 20120721
  Receipt Date: 20120718
  Transmission Date: 20120928
  Serious: Yes (Other)
  Sender: FDA-Public Use
  Company Number: 2012032625

PATIENT
  Age: 61 Year
  Sex: Female
  Weight: 79.8331 kg

DRUGS (18)
  1. HIZENTRA [Suspect]
     Indication: IMMUNODEFICIENCY COMMON VARIABLE
     Dosage: (10 G 1X/WEEK, 2 GM VIA THREE SITES SUBCUTANEOUS), (10 G 1X/WEEK, 4 GM VIA 3 SITES SUBCUTANEOUS)
     Route: 058
     Dates: start: 20120528, end: 20120528
  2. HIZENTRA [Suspect]
     Indication: IMMUNODEFICIENCY COMMON VARIABLE
     Dosage: (10 G 1X/WEEK, 2 GM VIA THREE SITES SUBCUTANEOUS), (10 G 1X/WEEK, 4 GM VIA 3 SITES SUBCUTANEOUS)
     Route: 058
     Dates: start: 20120528, end: 20120528
  3. HIZENTRA [Suspect]
  4. CLARINEX (NARINE) [Concomitant]
  5. CALCIUM CARBONATE [Concomitant]
  6. METFFORMIN HYDROCHLORIDE [Concomitant]
  7. SANCTURA [Concomitant]
  8. PROZAC [Concomitant]
  9. CINNAMON (CINNAMOMUM VERUM) [Concomitant]
  10. VYTORIN [Concomitant]
  11. DILTIAZEM [Concomitant]
  12. VITAMIN D [Concomitant]
  13. ACETAMINOPHEN [Concomitant]
  14. FLOVENT HFA [Concomitant]
  15. RHINOCORT [Concomitant]
  16. VITAMIN B12 [Concomitant]
  17. OMEPRAZOLE [Concomitant]
  18. PREMARIN [Concomitant]

REACTIONS (1)
  - RENAL IMPAIRMENT [None]
